FAERS Safety Report 9166249 (Version 1)
Quarter: 2013Q1

REPORT INFORMATION
  Report Type: Spontaneous
  Country: FR (occurrence: FR)
  Receive Date: 20130315
  Receipt Date: 20130315
  Transmission Date: 20140127
  Serious: Yes (Other)
  Sender: FDA-Public Use
  Company Number: FR-ASTRAZENECA-2012SE17329

PATIENT
  Age: 577 Month
  Sex: Male

DRUGS (9)
  1. XEROQUEL [Suspect]
     Indication: BIPOLAR I DISORDER
     Route: 048
     Dates: start: 20120302
  2. TERALITHE [Suspect]
     Indication: BIPOLAR I DISORDER
  3. LAMICTAL [Concomitant]
     Indication: BIPOLAR DISORDER
     Route: 048
  4. LITHIUM [Concomitant]
     Indication: BIPOLAR DISORDER
     Route: 048
  5. DEROXAT [Concomitant]
     Route: 048
  6. LYSANXIA [Concomitant]
     Route: 048
  7. HAVLANE [Concomitant]
     Route: 048
  8. NOVORAPID [Concomitant]
     Indication: TYPE 1 DIABETES MELLITUS
     Dosage: 7 U EVERY MORNING, 8 U AT MIDDAY, 13 U IN THE EVENING
     Route: 058
  9. LANTUS [Concomitant]
     Indication: TYPE 1 DIABETES MELLITUS
     Dosage: 34 U AT THE EVENNING
     Route: 058

REACTIONS (4)
  - Sedation [Recovering/Resolving]
  - Diabetes mellitus [Not Recovered/Not Resolved]
  - Weight increased [Not Recovered/Not Resolved]
  - Thyroid disorder [Not Recovered/Not Resolved]
